FAERS Safety Report 7608110-2 (Version None)
Quarter: 2011Q3

REPORT INFORMATION
  Report Type: 
  Country: None (occurrence: None)
  Receive Date: 20110714
  Receipt Date: 20110622
  Transmission Date: 20111222
  Serious: No
  Sender: FDA-Public Use
  Company Number: US-B.I. PHARMACEUTICALS,INC./RIDGEFIELD-2011-BP-16076BP

PATIENT
  Age: 77 Year
  Sex: Female

DRUGS (3)
  1. MICARDIS [Suspect]
     Indication: HYPERTENSION
     Dosage: 20 MG
     Route: 048
     Dates: start: 20110301, end: 20110619
  2. VIT D [Concomitant]
     Indication: SUPPLEMENTATION THERAPY
     Dosage: 50000 MG
     Route: 048
  3. CALCIUM CARBONATE [Concomitant]
     Indication: SUPPLEMENTATION THERAPY
     Dosage: 2000 MG
     Route: 048

REACTIONS (2)
  - BACK PAIN [None]
  - BONE PAIN [None]
